FAERS Safety Report 10215390 (Version 2)
Quarter: 2014Q2

REPORT INFORMATION
  Report Type: Report from Study
  Country: FR (occurrence: FR)
  Receive Date: 20140604
  Receipt Date: 20140618
  Transmission Date: 20141212
  Serious: Yes (Hospitalization)
  Sender: FDA-Public Use
  Company Number: FR-ROCHE-1412046

PATIENT
  Age: 75 Year
  Sex: Male

DRUGS (5)
  1. ZELBORAF [Suspect]
     Indication: MALIGNANT MELANOMA
     Dosage: 2 THE MORNING AND 2 THE EVENING
     Route: 048
     Dates: start: 20140207, end: 20140321
  2. SPIRONOLACTONE [Suspect]
     Indication: HYPERTENSION
     Route: 048
  3. CANDESARTAN [Concomitant]
  4. SOTALEX [Concomitant]
  5. AMLOR [Concomitant]

REACTIONS (1)
  - Hypokalaemia [Recovered/Resolved]
